FAERS Safety Report 6234338-2 (Version None)
Quarter: 2009Q2

REPORT INFORMATION
  Report Type: 
  Country: None (occurrence: None)
  Receive Date: 20090618
  Receipt Date: 20090608
  Transmission Date: 20091009
  Serious: Yes (Life-Threatening)
  Sender: FDA-Public Use
  Company Number: JP-PFIZER INC-2009221885

PATIENT
  Age: 65 Year

DRUGS (8)
  1. SUNITINIB MALATE [Suspect]
     Indication: GASTROINTESTINAL STROMAL TUMOUR
     Dosage: 50 MG, 1X/DAY
     Route: 048
     Dates: start: 20080814
  2. RHYTHMY [Concomitant]
     Dosage: UNK
     Route: 048
     Dates: start: 20070328
  3. AZUNOL #1 [Concomitant]
     Dosage: UNK
     Dates: start: 20080827
  4. BERIZYM [Concomitant]
     Dosage: UNK
     Route: 048
  5. LAC B [Concomitant]
     Dosage: UNK
     Route: 048
  6. MAGNESIUM OXIDE [Concomitant]
     Dosage: UNK
     Route: 048
  7. GASTER [Concomitant]
     Dosage: UNK
     Route: 048
     Dates: start: 20060809
  8. PERDIPINE [Concomitant]
     Dosage: UNK
     Dates: start: 20090523

REACTIONS (1)
  - ANEURYSM [None]
